APPROVED DRUG PRODUCT: CYCLOBENZAPRINE HYDROCHLORIDE
Active Ingredient: CYCLOBENZAPRINE HYDROCHLORIDE
Strength: 10MG
Dosage Form/Route: TABLET;ORAL
Application: A090478 | Product #002 | TE Code: AB
Applicant: INVAGEN PHARMACEUTICALS INC
Approved: Jul 23, 2010 | RLD: No | RS: No | Type: RX